FAERS Safety Report 17031278 (Version 2)
Quarter: 2019Q4

REPORT INFORMATION
  Report Type: Spontaneous
  Country: JP (occurrence: JP)
  Receive Date: 20191114
  Receipt Date: 20191126
  Transmission Date: 20200122
  Serious: Yes (Hospitalization)
  Sender: FDA-Public Use
  Company Number: JP-PFIZER INC-2019487844

PATIENT
  Age: 79 Year
  Sex: Female

DRUGS (1)
  1. MEROPENEM. [Suspect]
     Active Substance: MEROPENEM
     Indication: URINARY TRACT INFECTION
     Dosage: UNK
     Route: 041
     Dates: start: 201511

REACTIONS (7)
  - Clostridium test positive [Unknown]
  - Septic shock [Unknown]
  - Colitis [Unknown]
  - Disseminated intravascular coagulation [Unknown]
  - Peritonitis [Unknown]
  - Pseudomembranous colitis [Unknown]
  - Systemic inflammatory response syndrome [Unknown]
